FAERS Safety Report 12891066 (Version 1)
Quarter: 2016Q4

REPORT INFORMATION
  Report Type: Report from Study
  Country: US (occurrence: US)
  Receive Date: 20161027
  Receipt Date: 20161027
  Transmission Date: 20170207
  Serious: No
  Sender: FDA-Public Use
  Company Number: US-AMGEN-USASL2016148326

PATIENT
  Age: 24 Year
  Sex: Female

DRUGS (1)
  1. ENBREL [Suspect]
     Active Substance: ETANERCEPT
     Indication: ANKYLOSING SPONDYLITIS
     Dosage: 50 MG, UNK
     Route: 065

REACTIONS (7)
  - Ear discomfort [Recovered/Resolved]
  - Head discomfort [Recovered/Resolved]
  - Cough [Recovered/Resolved]
  - Chills [Unknown]
  - Oropharyngeal pain [Recovered/Resolved]
  - Pyrexia [Unknown]
  - Rhinorrhoea [Recovered/Resolved]
